FAERS Safety Report 4385562-5 (Version None)
Quarter: 2004Q2

REPORT INFORMATION
  Report Type: 
  Country: None (occurrence: None)
  Receive Date: 20040622
  Receipt Date: 20040416
  Transmission Date: 20050107
  Serious: Yes (Life-Threatening, Hospitalization)
  Sender: FDA-Public Use
  Company Number: J200401933

PATIENT
  Age: 50 Year
  Sex: Male

DRUGS (10)
  1. MYSLEE-               ZOLPIDEM) [Suspect]
     Indication: INSOMNIA
     Dosage: 5 MG, PO
     Route: 048
     Dates: start: 20030506, end: 20030530
  2. DORAL [Suspect]
     Indication: INSOMNIA
     Dosage: 20 MG, PO
     Route: 048
     Dates: start: 20030506, end: 20030530
  3. SEPAZON (CLOXAZOLAM) [Concomitant]
  4. LIMAS (LITHIUM CARBONATE) [Concomitant]
  5. TREMIN (TRIHEXYPHENIDYL HYDROCHLORIDE) [Concomitant]
  6. LENDORM [Concomitant]
  7. ROHYPNOL (FLUNITRAZEPAM) [Concomitant]
  8. LEXOTAN (BROMAZEPAM) [Concomitant]
  9. LODOPIN (ZOTEPINE) [Concomitant]
  10. FLUDECASIN (FLUPHENAZINE DECANOATE) [Concomitant]

REACTIONS (11)
  - ALANINE AMINOTRANSFERASE INCREASED [None]
  - BLOOD ALKALINE PHOSPHATASE INCREASED [None]
  - DEPRESSED LEVEL OF CONSCIOUSNESS [None]
  - DISTURBANCE IN ATTENTION [None]
  - DIZZINESS [None]
  - DRUG EFFECT DECREASED [None]
  - GAMMA-GLUTAMYLTRANSFERASE INCREASED [None]
  - INJURY [None]
  - NERVOUS SYSTEM DISORDER [None]
  - ROAD TRAFFIC ACCIDENT [None]
  - SOMNOLENCE [None]
